FAERS Safety Report 9748913 (Version 2)
Quarter: 2013Q4

REPORT INFORMATION
  Report Type: Spontaneous
  Country: US (occurrence: US)
  Receive Date: 20131212
  Receipt Date: 20131212
  Transmission Date: 20140711
  Serious: No
  Sender: FDA-Public Use
  Company Number: US-INCYTE CORPORATION-2013IN001797

PATIENT
  Sex: Male

DRUGS (13)
  1. JAKAFI [Suspect]
     Indication: MYELOFIBROSIS
     Dosage: 10 MG, BID
     Route: 048
     Dates: end: 201209
  2. JAKAFI [Suspect]
     Dosage: 1 TAB BID
     Route: 048
     Dates: start: 201209, end: 20130730
  3. JAKAFI [Suspect]
     Dosage: 5 MG, BID
     Route: 048
     Dates: start: 20130731
  4. MINOCYCLINE HCL [Concomitant]
  5. ZANTAC 75 [Concomitant]
  6. OXYBUTYNIN CHLORIDE ER [Concomitant]
  7. FINASTERIDE [Concomitant]
  8. ALFUZOSIN HCL ER [Concomitant]
  9. FLUTICASONE PROPIONATE [Concomitant]
  10. KETOCONAZOLE [Concomitant]
  11. METROGEL [Concomitant]
  12. POLYVINYL ALCOHOL [Concomitant]
  13. VITAMIN D2 [Concomitant]

REACTIONS (3)
  - Fatigue [Unknown]
  - Blood iron increased [Unknown]
  - Anaemia [Unknown]
